FAERS Safety Report 10113451 (Version 1)
Quarter: 2014Q2

REPORT INFORMATION
  Report Type: Spontaneous
  Country: US (occurrence: US)
  Receive Date: 20140425
  Receipt Date: 20140425
  Transmission Date: 20141212
  Serious: Yes (Hospitalization)
  Sender: FDA-Public Use
  Company Number: US-BAYER-2014-059716

PATIENT
  Age: 36 Year
  Sex: Female
  Weight: 80 kg

DRUGS (5)
  1. YAZ [Suspect]
     Route: 048
  2. YASMIN [Suspect]
     Route: 048
  3. ZOFRAN [Concomitant]
     Indication: NAUSEA
  4. DILAUDID [Concomitant]
     Indication: PAIN
  5. VICODIN [Concomitant]

REACTIONS (1)
  - Pulmonary embolism [None]
